FAERS Safety Report 19302096 (Version 1)
Quarter: 2021Q2

REPORT INFORMATION
  Report Type: Spontaneous
  Country: US (occurrence: US)
  Receive Date: 20210525
  Receipt Date: 20210525
  Transmission Date: 20210717
  Serious: Yes (Death)
  Sender: FDA-Public Use
  Company Number: None

PATIENT
  Sex: Male
  Weight: 78.75 kg

DRUGS (2)
  1. FENTANYL. [Suspect]
     Active Substance: FENTANYL
  2. KRATOM [Suspect]
     Active Substance: HERBALS\MITRAGYNINE

REACTIONS (2)
  - Toxicologic test abnormal [None]
  - Death [None]
